FAERS Safety Report 4569943-2 (Version None)
Quarter: 2005Q1

REPORT INFORMATION
  Report Type: 
  Country: None (occurrence: None)
  Receive Date: 20050204
  Receipt Date: 20050124
  Transmission Date: 20050727
  Serious: Yes (Hospitalization, Other)
  Sender: FDA-Public Use
  Company Number: US-JNJFOC-20041100634

PATIENT
  Sex: Male
  Weight: 77.11 kg

DRUGS (10)
  1. REMICADE [Suspect]
     Route: 042
  2. REMICADE [Suspect]
     Route: 042
  3. PLAQUENIL [Concomitant]
  4. METHOTREXATE [Concomitant]
  5. SALICYLATE [Concomitant]
  6. NITROGLYCERIN [Concomitant]
  7. ZOCOR [Concomitant]
  8. BENICAR [Concomitant]
  9. ALFLUZOSIM [Concomitant]
  10. ACIPHEX [Concomitant]

REACTIONS (10)
  - CORONARY ARTERY DISEASE [None]
  - CORONARY ARTERY SURGERY [None]
  - COUGH [None]
  - FLUSHING [None]
  - LUNG OPERATION [None]
  - PLEURISY [None]
  - POSTOPERATIVE INFECTION [None]
  - PRURITUS [None]
  - PYREXIA [None]
  - STAPHYLOCOCCAL SEPSIS [None]
